FAERS Safety Report 10861843 (Version 1)
Quarter: 2015Q1

REPORT INFORMATION
  Report Type: Spontaneous
  Country: US (occurrence: US)
  Receive Date: 20150224
  Receipt Date: 20150224
  Transmission Date: 20150721
  Serious: Yes (Death)
  Sender: FDA-Public Use
  Company Number: US-BANPHARM-20153501

PATIENT
  Age: 38 Year
  Sex: Female

DRUGS (7)
  1. IBUPROFEN UNKNOWN PRODUCT [Suspect]
     Active Substance: IBUPROFEN
  2. DIPHENHYDRAMINE/IBUPROFEN [Suspect]
     Active Substance: DIPHENHYDRAMINE HYDROCHLORIDE\IBUPROFEN
  3. TRAMADOL [Suspect]
     Active Substance: TRAMADOL
  4. CLONAZEPAM. [Suspect]
     Active Substance: CLONAZEPAM
  5. CYCLOBENZAPRINE [Suspect]
     Active Substance: CYCLOBENZAPRINE
  6. DULOXETINE [Suspect]
     Active Substance: DULOXETINE
  7. GABAPENTIN. [Suspect]
     Active Substance: GABAPENTIN

REACTIONS (2)
  - Exposure via ingestion [None]
  - Completed suicide [Fatal]
